FAERS Safety Report 6933635-2 (Version None)
Quarter: 2010Q3

REPORT INFORMATION
  Report Type: 
  Country: None (occurrence: None)
  Receive Date: 20100820
  Receipt Date: 20100813
  Transmission Date: 20110219
  Serious: Yes (Hospitalization, Other)
  Sender: FDA-Public Use
  Company Number: US-ASTRAZENECA-2010SE38071

PATIENT
  Sex: Male

DRUGS (1)
  1. NEXIUM [Suspect]
     Route: 048

REACTIONS (7)
  - AORTIC ANEURYSM [None]
  - APHAGIA [None]
  - GALLBLADDER CANCER [None]
  - LIFE EXPECTANCY SHORTENED [None]
  - MALAISE [None]
  - VASCULAR GRAFT [None]
  - WEIGHT DECREASED [None]
